FAERS Safety Report 18289926 (Version 3)
Quarter: 2021Q1

REPORT INFORMATION
  Report Type: Report from Study
  Country: FR (occurrence: FR)
  Receive Date: 20200921
  Receipt Date: 20210126
  Transmission Date: 20210419
  Serious: Yes (Death, Hospitalization)
  Sender: FDA-Public Use
  Company Number: FR-ROCHE-2674621

PATIENT
  Age: 81 Year
  Sex: Male

DRUGS (10)
  1. CARBOPLATINE [Suspect]
     Active Substance: CARBOPLATIN
     Indication: NON-SMALL CELL LUNG CANCER
     Dosage: LAST DOSE OF CARBOPLATIN RECEIVED ON 26/AUG/2020.
     Route: 065
     Dates: start: 20200805
  2. ATEZOLIZUMAB. [Suspect]
     Active Substance: ATEZOLIZUMAB
     Indication: NON-SMALL CELL LUNG CANCER
     Dosage: LAST DOSE OF ATEZOLIZUMAB RECEIVED ON 26/AUG/2020.
     Route: 042
     Dates: start: 20200805
  3. PANTOPRAZOLE [Concomitant]
     Active Substance: PANTOPRAZOLE
  4. PARACETAMOL [Concomitant]
     Active Substance: ACETAMINOPHEN
  5. CORTANCYL [Concomitant]
     Active Substance: PREDNISONE
  6. ROSUVASTATIN. [Concomitant]
     Active Substance: ROSUVASTATIN
  7. TADENAN [Concomitant]
     Active Substance: PYGEUM
  8. PACLITAXEL. [Suspect]
     Active Substance: PACLITAXEL
     Indication: NON-SMALL CELL LUNG CANCER
     Dosage: LAST DOSE OF PACLITAXEL RECEIVED ON 26/AUG/2020.
     Route: 065
     Dates: start: 20200805
  9. LEVETIRACETAM. [Concomitant]
     Active Substance: LEVETIRACETAM
  10. IMOVANE [Concomitant]
     Active Substance: ZOPICLONE

REACTIONS (2)
  - Tubulointerstitial nephritis [Recovered/Resolved]
  - Disease progression [Fatal]

NARRATIVE: CASE EVENT DATE: 20200904
